FAERS Safety Report 8232548-6 (Version None)
Quarter: 2012Q1

REPORT INFORMATION
  Report Type: 
  Country: None (occurrence: None)
  Receive Date: 20120323
  Receipt Date: 20120320
  Transmission Date: 20120608
  Serious: Yes (Other)
  Sender: FDA-Public Use
  Company Number: KR-B.I. PHARMACEUTICALS,INC./RIDGEFIELD-2012-EU-01606GD

PATIENT
  Age: 37 Year
  Sex: Female

DRUGS (1)
  1. RANITIDINE [Suspect]

REACTIONS (6)
  - ANAPHYLACTIC REACTION [None]
  - GASTROINTESTINAL DISORDER [None]
  - URTICARIA [None]
  - ANGIOEDEMA [None]
  - DYSPNOEA [None]
  - HYPOTENSION [None]
